FAERS Safety Report 23689873 (Version 3)
Quarter: 2024Q2

REPORT INFORMATION
  Report Type: Report from Study
  Country: CA (occurrence: CA)
  Receive Date: 20240401
  Receipt Date: 20240508
  Transmission Date: 20240716
  Serious: Yes (Other)
  Sender: FDA-Public Use
  Company Number: CA-ABBVIE-5699008

PATIENT
  Age: 67 Year
  Sex: Male
  Weight: 92 kg

DRUGS (2)
  1. LUPRON DEPOT [Suspect]
     Active Substance: LEUPROLIDE ACETATE
     Indication: Prostate cancer
     Route: 030
     Dates: start: 20200409
  2. ENZALUTAMIDE [Concomitant]
     Active Substance: ENZALUTAMIDE
     Indication: Product used for unknown indication

REACTIONS (6)
  - Fistula [Recovered/Resolved with Sequelae]
  - Vesical fistula [Recovering/Resolving]
  - Pelvic pain [Recovering/Resolving]
  - Pain [Unknown]
  - Prostatic specific antigen decreased [Unknown]
  - Urostomy [Unknown]

NARRATIVE: CASE EVENT DATE: 20230101
